FAERS Safety Report 22118982 (Version 6)
Quarter: 2024Q2

REPORT INFORMATION
  Report Type: Spontaneous
  Country: DE (occurrence: DE)
  Receive Date: 20230321
  Receipt Date: 20240402
  Transmission Date: 20240716
  Serious: Yes (Other)
  Sender: FDA-Public Use
  Company Number: DE-LESVI-2023000683

PATIENT
  Age: 35 Year
  Sex: Male
  Weight: 61 kg

DRUGS (24)
  1. VALPROATE [Suspect]
     Active Substance: VALPROIC ACID
     Indication: Product used for unknown indication
     Dosage: UNK
     Route: 065
  2. LAMOTRIGINE [Suspect]
     Active Substance: LAMOTRIGINE
     Indication: Product used for unknown indication
     Dosage: UNK, QD, FIRST 2 WEEKS: 25-0
     Route: 065
     Dates: start: 20210521
  3. LAMOTRIGINE [Suspect]
     Active Substance: LAMOTRIGINE
     Dosage: UNK, Q2D,THIRD WEEK: 25-25
     Route: 065
     Dates: start: 20210521
  4. LAMOTRIGINE [Suspect]
     Active Substance: LAMOTRIGINE
     Dosage: UNK, Q2D, FOURTH WEEK: 50-25
     Route: 065
  5. LAMOTRIGINE [Suspect]
     Active Substance: LAMOTRIGINE
     Dosage: UNK,Q2D,5THWEEK: 50-50;6TH WEEK:STILL 50-50
     Route: 065
  6. LAMOTRIGINE [Suspect]
     Active Substance: LAMOTRIGINE
     Dosage: UNK,Q2D,7THWK: CONTINUED TO KEEP THE LEVEL 50-50
     Route: 065
  7. LAMOTRIGINE [Suspect]
     Active Substance: LAMOTRIGINE
     Dosage: UNK,Q2D,8THWK: DOSED DOWN TO 50-25
     Route: 065
  8. LAMOTRIGINE [Suspect]
     Active Substance: LAMOTRIGINE
     Dosage: UNK, Q2D,9THWK:FURTHER REDUCED TO 25-25
     Route: 065
  9. LAMOTRIGINE [Suspect]
     Active Substance: LAMOTRIGINE
     Dosage: UNK, QD,10TH AND 11THWEEK: 25-0
     Route: 065
  10. LACOSAMIDE [Suspect]
     Active Substance: LACOSAMIDE
     Indication: Product used for unknown indication
     Dosage: UNK
     Route: 065
  11. PRIMIDONE [Suspect]
     Active Substance: PRIMIDONE
     Indication: Product used for unknown indication
     Dosage: 0-62.5
     Route: 065
  12. PRIMIDONE [Suspect]
     Active Substance: PRIMIDONE
     Dosage: 62.5-62.5
     Route: 065
  13. PRIMIDONE [Suspect]
     Active Substance: PRIMIDONE
     Dosage: 50-50
     Route: 065
  14. PRIMIDONE [Suspect]
     Active Substance: PRIMIDONE
     Dosage: 100-100
     Route: 065
  15. PRIMIDONE [Suspect]
     Active Substance: PRIMIDONE
     Dosage: 150-150
     Route: 065
  16. PRIMIDONE [Suspect]
     Active Substance: PRIMIDONE
     Dosage: 250-250
     Route: 065
  17. PRIMIDONE [Suspect]
     Active Substance: PRIMIDONE
     Dosage: 500-500
     Route: 065
  18. PRIMIDONE [Suspect]
     Active Substance: PRIMIDONE
     Dosage: 750-750
     Route: 065
  19. LEVETIRACETAM [Suspect]
     Active Substance: LEVETIRACETAM
     Indication: Product used for unknown indication
     Dosage: 500-500
     Route: 065
  20. LEVETIRACETAM [Suspect]
     Active Substance: LEVETIRACETAM
     Indication: Product used for unknown indication
     Dosage: UNK
     Route: 065
  21. VALPROAT STADA [Concomitant]
     Indication: Product used for unknown indication
     Dosage: 250-250
     Route: 065
  22. VALPROAT STADA [Concomitant]
     Dosage: 500-500
     Route: 065
  23. VALPROAT STADA [Concomitant]
     Dosage: 750-750
     Route: 065
  24. VALPROIC ACID [Concomitant]
     Active Substance: VALPROIC ACID
     Indication: Product used for unknown indication
     Dosage: UNK
     Route: 065

REACTIONS (20)
  - Epilepsy [Unknown]
  - Petit mal epilepsy [Unknown]
  - Umbilical haemorrhage [Unknown]
  - Pruritus [Unknown]
  - Subcutaneous abscess [Unknown]
  - Loss of libido [Recovering/Resolving]
  - Hypersensitivity [Unknown]
  - Lip haemorrhage [Recovered/Resolved]
  - Axillary pain [Recovering/Resolving]
  - Aggression [Unknown]
  - Ingrown hair [Unknown]
  - Lip injury [Unknown]
  - Weight decreased [Unknown]
  - Muscle twitching [Unknown]
  - Insomnia [Unknown]
  - Restlessness [Unknown]
  - Alopecia [Unknown]
  - Anger [Unknown]
  - Hypophagia [Unknown]
  - Tremor [Unknown]
